FAERS Safety Report 5840774-6 (Version None)
Quarter: 2008Q3

REPORT INFORMATION
  Report Type: 
  Country: None (occurrence: None)
  Receive Date: 20080811
  Receipt Date: 20080731
  Transmission Date: 20090109
  Serious: Yes (Hospitalization)
  Sender: FDA-Public Use
  Company Number: US-WYE-H05308708

PATIENT
  Sex: Female
  Weight: 77.18 kg

DRUGS (8)
  1. ADVIL [Suspect]
     Indication: PREMEDICATION
     Dosage: UNKNOWN
     Route: 048
     Dates: end: 20080101
  2. ADVIL [Suspect]
     Indication: INFLUENZA LIKE ILLNESS
  3. ADVIL [Suspect]
     Indication: HEADACHE
  4. RITALIN [Concomitant]
     Indication: FATIGUE
     Dosage: UNKNOWN
     Route: 065
     Dates: start: 20071101
  5. ZOLOFT [Concomitant]
     Indication: DEPRESSION
     Dosage: UNKNOWN
     Route: 065
     Dates: start: 20080101
  6. REBIF [Suspect]
     Indication: MULTIPLE SCLEROSIS
     Dosage: 44 MCG 3 TIMES PER WEEK
     Route: 058
     Dates: start: 20071126, end: 20080306
  7. REBIF [Suspect]
     Dosage: 44 MCG 3 TIMES PER WEEK
     Route: 058
     Dates: start: 20080101
  8. LYRICA [Concomitant]
     Indication: PAIN
     Dosage: UNKNOWN
     Route: 065
     Dates: start: 20060101

REACTIONS (2)
  - BLEEDING TIME PROLONGED [None]
  - CHOLELITHIASIS [None]
